FAERS Safety Report 11697784 (Version 1)
Quarter: 2015Q4

REPORT INFORMATION
  Report Type: Spontaneous
  Country: US (occurrence: US)
  Receive Date: 20151104
  Receipt Date: 20151104
  Transmission Date: 20160304
  Serious: No
  Sender: FDA-Public Use
  Company Number: US-ELI_LILLY_AND_COMPANY-US201012000858

PATIENT
  Age: 40 Year
  Sex: Male

DRUGS (1)
  1. FORTEO [Suspect]
     Active Substance: TERIPARATIDE
     Indication: OSTEOPOROSIS
     Dosage: 20 UG, DAILY (1/D)
     Dates: start: 201004, end: 201011

REACTIONS (6)
  - Dizziness [Unknown]
  - Malaise [Unknown]
  - Insomnia [Unknown]
  - Restless legs syndrome [Unknown]
  - Fatigue [Unknown]
  - Nausea [Unknown]
